FAERS Safety Report 7930514-9 (Version None)
Quarter: 2011Q4

REPORT INFORMATION
  Report Type: 
  Country: None (occurrence: None)
  Receive Date: 20111121
  Receipt Date: 20111115
  Transmission Date: 20120403
  Serious: Yes (Disabling)
  Sender: FDA-Public Use
  Company Number: US-CELGENEUS-163-21880-11092539

PATIENT
  Sex: Male

DRUGS (13)
  1. NORCO [Concomitant]
     Route: 065
  2. NIASPAN [Concomitant]
     Route: 065
  3. REVLIMID [Suspect]
     Indication: MULTIPLE MYELOMA
     Dosage: 25 MILLIGRAM
     Route: 048
     Dates: start: 20110305, end: 20110801
  4. EFFEXOR [Concomitant]
     Route: 065
  5. ASPIRIN [Concomitant]
     Route: 065
  6. PRILOSEC [Concomitant]
     Route: 065
  7. ANDROGEL [Concomitant]
     Route: 065
  8. SPIRIVA [Concomitant]
     Route: 065
  9. ADVAIR DISKUS 100/50 [Concomitant]
     Route: 065
  10. STEROIDS [Concomitant]
     Route: 065
  11. VITAMIN TAB [Concomitant]
     Route: 065
  12. FENTANYL [Concomitant]
     Route: 065
  13. BETA-SITOSTEROL [Concomitant]
     Route: 065

REACTIONS (1)
  - BONE FRAGMENTATION [None]
